FAERS Safety Report 24008579 (Version 1)
Quarter: 2024Q2

REPORT INFORMATION
  Report Type: Spontaneous
  Country: US (occurrence: US)
  Receive Date: 20240625
  Receipt Date: 20240625
  Transmission Date: 20240716
  Serious: Yes (Hospitalization)
  Sender: FDA-Public Use
  Company Number: US-AMGEN-USASP2024121157

PATIENT
  Age: 50 Year
  Sex: Female

DRUGS (1)
  1. PREDNISONE [Suspect]
     Active Substance: PREDNISONE
     Indication: Rheumatic disorder
     Dosage: 60 MILLIGRAM, QD
     Route: 065

REACTIONS (9)
  - Acute respiratory distress syndrome [Unknown]
  - COVID-19 [Unknown]
  - Bronchopleural fistula [Unknown]
  - Haemothorax [Unknown]
  - Pneumothorax [Unknown]
  - Interstitial lung disease [Unknown]
  - Cytomegalovirus infection [Unknown]
  - Anti-melanoma differentiation-associated protein 5 antibody positive [Unknown]
  - Dermatomyositis [Unknown]
